FAERS Safety Report 23612981 (Version 1)
Quarter: 2024Q1

REPORT INFORMATION
  Report Type: Spontaneous
  Country: US (occurrence: US)
  Receive Date: 20240308
  Receipt Date: 20240308
  Transmission Date: 20240410
  Serious: Yes (Other)
  Sender: FDA-Public Use
  Company Number: US-009507513-2403USA000816

PATIENT
  Age: 33 Year
  Sex: Female

DRUGS (7)
  1. KEYTRUDA [Suspect]
     Active Substance: PEMBROLIZUMAB
     Indication: Triple negative breast cancer
     Dosage: UNK
     Dates: start: 20230321, end: 20230606
  2. KEYTRUDA [Suspect]
     Active Substance: PEMBROLIZUMAB
     Dosage: UNK
     Dates: start: 20230620
  3. PACLITAXEL [Suspect]
     Active Substance: PACLITAXEL
     Indication: Triple negative breast cancer
     Dosage: UNK
     Dates: start: 20230321, end: 20230606
  4. CARBOPLATIN [Suspect]
     Active Substance: CARBOPLATIN
     Indication: Triple negative breast cancer
     Dosage: UNK
     Dates: start: 20230321, end: 20230606
  5. DOXORUBICIN [Suspect]
     Active Substance: DOXORUBICIN
     Indication: Triple negative breast cancer
     Dosage: UNK
     Dates: start: 20230620
  6. CYCLOPHOSPHAMIDE [Suspect]
     Active Substance: CYCLOPHOSPHAMIDE
     Indication: Triple negative breast cancer
     Dosage: UNK
     Dates: start: 20230620
  7. PEGFILGRASTIM [Suspect]
     Active Substance: PEGFILGRASTIM
     Indication: Triple negative breast cancer
     Dosage: UNK
     Dates: start: 20230620

REACTIONS (23)
  - Hypothyroidism [Unknown]
  - Nausea [Unknown]
  - Vomiting [Unknown]
  - Dizziness [Unknown]
  - Blood sodium decreased [Recovered/Resolved]
  - Neutrophil count abnormal [Unknown]
  - Adrenocorticotropic hormone deficiency [Unknown]
  - Cortisol decreased [Unknown]
  - Blood prolactin increased [Unknown]
  - Blood chloride decreased [Recovered/Resolved]
  - Blood chloride increased [Unknown]
  - Carbon dioxide decreased [Recovered/Resolved]
  - Blood urea decreased [Recovered/Resolved]
  - Blood creatinine decreased [Unknown]
  - Blood osmolarity decreased [Unknown]
  - Haemoglobin decreased [Unknown]
  - Haematocrit decreased [Unknown]
  - Red blood cell count decreased [Unknown]
  - Platelet count decreased [Recovered/Resolved]
  - Red cell distribution width increased [Unknown]
  - Lymphocyte count decreased [Recovered/Resolved]
  - Immature granulocyte count increased [Recovered/Resolved]
  - Product use issue [Unknown]

NARRATIVE: CASE EVENT DATE: 20230624
